FAERS Safety Report 12675754 (Version 1)
Quarter: 2016Q3

REPORT INFORMATION
  Report Type: Spontaneous
  Country: US (occurrence: US)
  Receive Date: 20160823
  Receipt Date: 20160823
  Transmission Date: 20161109
  Serious: No
  Sender: FDA-Public Use
  Company Number: US-JAZZ-2016-US-006671

PATIENT
  Sex: Female

DRUGS (24)
  1. DELSYM [Concomitant]
     Active Substance: DEXTROMETHORPHAN
  2. CANASA [Concomitant]
     Active Substance: MESALAMINE
  3. OMEPRAZOLE. [Concomitant]
     Active Substance: OMEPRAZOLE
  4. BUSPIRONE HCL [Concomitant]
     Active Substance: BUSPIRONE HYDROCHLORIDE
  5. SPIRONOLACTONE. [Concomitant]
     Active Substance: SPIRONOLACTONE
  6. XYREM [Suspect]
     Active Substance: SODIUM OXYBATE
     Indication: NARCOLEPSY
     Dosage: 2.25 G, BID
     Route: 048
     Dates: start: 201202, end: 201202
  7. MIRALAX [Concomitant]
     Active Substance: POLYETHYLENE GLYCOL 3350
  8. PREVIDENT [Concomitant]
     Active Substance: SODIUM FLUORIDE
  9. MULTIVITAMINS [Concomitant]
     Active Substance: VITAMINS
  10. ACETAMINOPHEN. [Concomitant]
     Active Substance: ACETAMINOPHEN
  11. DIFLUCAN [Concomitant]
     Active Substance: FLUCONAZOLE
  12. MIDRIN [Concomitant]
     Active Substance: ACETAMINOPHEN\DICHLORALPHENAZONE\ISOMETHEPTENE
  13. CLONAZEPAM. [Concomitant]
     Active Substance: CLONAZEPAM
  14. IBUPROFEN. [Concomitant]
     Active Substance: IBUPROFEN
  15. TESTOSTERONE. [Concomitant]
     Active Substance: TESTOSTERONE
  16. XYREM [Suspect]
     Active Substance: SODIUM OXYBATE
     Dosage: 4.5 G, BID
     Route: 048
     Dates: start: 201203
  17. MACROBID [Concomitant]
     Active Substance: NITROFURANTOIN\NITROFURANTOIN MONOHYDRATE
  18. ESCITALOPRAM [Concomitant]
     Active Substance: ESCITALOPRAM OXALATE
  19. VIVELLE-DOT [Concomitant]
     Active Substance: ESTRADIOL
  20. NUVIGIL [Concomitant]
     Active Substance: ARMODAFINIL
  21. LIALDA [Concomitant]
     Active Substance: MESALAMINE
  22. CABERGOLINE. [Concomitant]
     Active Substance: CABERGOLINE
  23. XYREM [Suspect]
     Active Substance: SODIUM OXYBATE
     Indication: CATAPLEXY
     Dosage: DOSE ADJUSTMENTS
     Route: 048
  24. SUDAFED PE CONGESTION [Concomitant]
     Active Substance: PHENYLEPHRINE HYDROCHLORIDE

REACTIONS (2)
  - Condition aggravated [Unknown]
  - Seasonal allergy [Unknown]
